FAERS Safety Report 24325876 (Version 1)
Quarter: 2024Q3

REPORT INFORMATION
  Report Type: Spontaneous
  Country: JP (occurrence: JP)
  Receive Date: 20240917
  Receipt Date: 20240917
  Transmission Date: 20241017
  Serious: Yes (Hospitalization, Disabling, Other)
  Sender: SANOFI AVENTIS
  Company Number: JP-SA-2024SA263282

PATIENT
  Age: 58 Year
  Sex: Male
  Weight: 55.5 kg

DRUGS (5)
  1. RENAGEL [Suspect]
     Active Substance: SEVELAMER HYDROCHLORIDE
     Indication: Hyperphosphataemia
     Dosage: 500 MG,  TID (IMMEDIATELY BEFORE BREAKFAST, LUNCH, AND DINNER)
     Route: 048
     Dates: end: 20240429
  2. OLMESARTAN MEDOXOMIL [Concomitant]
     Active Substance: OLMESARTAN MEDOXOMIL
     Dosage: UNK
     Route: 048
     Dates: end: 20240429
  3. CALTAN [Concomitant]
     Active Substance: CALCIUM CARBONATE
     Dosage: UNK
     Dates: end: 20240429
  4. FOSRENOL [Concomitant]
     Active Substance: LANTHANUM CARBONATE
     Dosage: UNK, QD
     Route: 048
     Dates: end: 20240429
  5. BARACLUDE [Concomitant]
     Active Substance: ENTECAVIR
     Dosage: UNK

REACTIONS (4)
  - Sepsis [Unknown]
  - Cerebral infarction [Unknown]
  - Hyperbilirubinaemia [Unknown]
  - Rectal perforation [Recovered/Resolved with Sequelae]

NARRATIVE: CASE EVENT DATE: 20240101
